FAERS Safety Report 16287351 (Version 5)
Quarter: 2019Q4

REPORT INFORMATION
  Report Type: Spontaneous
  Country: US (occurrence: US)
  Receive Date: 20190508
  Receipt Date: 20191014
  Transmission Date: 20200122
  Serious: Yes (Other)
  Sender: FDA-Public Use
  Company Number: US-PFIZER INC-2019189228

PATIENT
  Age: 55 Year
  Sex: Female
  Weight: 89 kg

DRUGS (1)
  1. LYRICA [Suspect]
     Active Substance: PREGABALIN
     Indication: NERVE INJURY
     Dosage: 100 MG, 2X/DAY
     Route: 048

REACTIONS (9)
  - Thyroid disorder [Unknown]
  - Withdrawal syndrome [Unknown]
  - Pain in extremity [Unknown]
  - Malaise [Unknown]
  - Paranoia [Unknown]
  - Drug abuser [Unknown]
  - Weight decreased [Unknown]
  - Nightmare [Unknown]
  - Gait disturbance [Unknown]
